FAERS Safety Report 16872420 (Version 1)
Quarter: 2019Q4

REPORT INFORMATION
  Report Type: Spontaneous
  Country: US (occurrence: US)
  Receive Date: 20191001
  Receipt Date: 20191001
  Transmission Date: 20200122
  Serious: No
  Sender: FDA-Public Use
  Company Number: US-MIKART, LLC-2075121

PATIENT
  Age: 65 Year
  Sex: Female
  Weight: 53.64 kg

DRUGS (5)
  1. CARTIA [Concomitant]
     Route: 048
  2. LEVOTHYROXINE. [Concomitant]
     Active Substance: LEVOTHYROXINE
     Route: 048
  3. MELOXICAM. [Concomitant]
     Active Substance: MELOXICAM
     Route: 048
  4. MULTI-VITAMIN [Concomitant]
     Active Substance: .ALPHA.-TOCOPHEROL ACETATE, DL-\ASCORBIC ACID\CYANOCOBALAMIN\FLUORIDE ION\FOLIC ACID\NIACIN\PYRIDOXINE\RIBOFLAVIN\THIAMINE\VITAMIN A\VITAMIN D
     Route: 048
  5. CHLORZOXAZONE. [Suspect]
     Active Substance: CHLORZOXAZONE
     Indication: MUSCLE SPASMS
     Route: 048
     Dates: start: 20190825, end: 20190901

REACTIONS (11)
  - Myalgia [Recovering/Resolving]
  - Bone pain [Recovering/Resolving]
  - Rash [Not Recovered/Not Resolved]
  - Diarrhoea [Recovered/Resolved]
  - Oedema [Recovered/Resolved]
  - Contusion [Recovering/Resolving]
  - Nausea [Recovered/Resolved]
  - Somnolence [Recovering/Resolving]
  - Ecchymosis [Unknown]
  - Chills [Not Recovered/Not Resolved]
  - Vomiting [Recovered/Resolved]
